FAERS Safety Report 8331926-4 (Version None)
Quarter: 2012Q2

REPORT INFORMATION
  Report Type: 
  Country: None (occurrence: None)
  Receive Date: 20120502
  Receipt Date: 20120420
  Transmission Date: 20120825
  Serious: Yes (Hospitalization)
  Sender: FDA-Public Use
  Company Number: US-ELI_LILLY_AND_COMPANY-US201109004475

PATIENT
  Sex: Female

DRUGS (17)
  1. AMITIZA [Concomitant]
  2. METHOTREXATE [Concomitant]
  3. IPRATROPIUM BROMIDE AND ALBUTEROL SULFATE [Concomitant]
  4. ANTIHISTAMINES [Concomitant]
  5. ALPRAZOLAM [Concomitant]
     Dosage: 0.5 MG, OTHER
  6. FORTEO [Suspect]
     Dosage: 20 UG, QD
     Route: 058
     Dates: end: 20120415
  7. BROVANA [Concomitant]
  8. PULMICORT [Concomitant]
  9. NEXIUM [Concomitant]
     Indication: GASTROOESOPHAGEAL REFLUX DISEASE
     Dosage: 40 MG, QD
  10. FORTEO [Suspect]
     Dosage: 20 UG, QD
     Route: 058
  11. ASTALIN [Concomitant]
  12. FLEXERIL [Concomitant]
     Indication: MUSCLE SPASMS
     Dosage: 5 MG, UNK
  13. PLAVIX [Concomitant]
     Dosage: 75 MG, UNK
  14. PRAVACHOL [Concomitant]
  15. FORTEO [Suspect]
     Indication: OSTEOPOROSIS
     Dosage: 20 UG, QD
     Route: 058
     Dates: start: 20110801
  16. TYLENOL (CAPLET) [Concomitant]
  17. GABAPENTIN [Concomitant]

REACTIONS (13)
  - INTENTIONAL DRUG MISUSE [None]
  - VEIN PAIN [None]
  - GASTRIC DISORDER [None]
  - RHEUMATOID ARTHRITIS [None]
  - BONE PAIN [None]
  - DYSPEPSIA [None]
  - INJECTION SITE PAIN [None]
  - HEARING IMPAIRED [None]
  - DRUG DOSE OMISSION [None]
  - BACK PAIN [None]
  - GASTROENTERITIS VIRAL [None]
  - EATING DISORDER [None]
  - INFLAMMATION [None]
